FAERS Safety Report 7330205-1 (Version None)
Quarter: 2011Q1

REPORT INFORMATION
  Report Type: 
  Country: None (occurrence: None)
  Receive Date: 20110303
  Receipt Date: 20110225
  Transmission Date: 20110831
  Serious: Yes (Hospitalization)
  Sender: FDA-Public Use
  Company Number: US-GILEAD-2011-0034900

PATIENT
  Sex: Female

DRUGS (22)
  1. SYNTHROID [Concomitant]
  2. DIGOXIN [Concomitant]
  3. MULTI-VITAMINS [Concomitant]
  4. LETAIRIS [Suspect]
     Indication: PULMONARY HYPERTENSION
     Route: 048
     Dates: start: 20101129
  5. PRILOSEC [Concomitant]
  6. RISPERDAL [Concomitant]
  7. ADCIRCA [Concomitant]
  8. NOVOLOG [Concomitant]
  9. EXELON [Concomitant]
  10. NAMENDA [Concomitant]
  11. CALCIUM CARBONATE [Concomitant]
  12. LASIX [Concomitant]
  13. NORVASC [Concomitant]
  14. ADVAIR DISKUS 100/50 [Concomitant]
  15. PREDNISONE [Concomitant]
  16. MAGNESIUM OXIDE [Concomitant]
  17. LISINOPRIL [Concomitant]
  18. TEMAZEPAM [Concomitant]
  19. ELAVIL [Concomitant]
  20. ZINC [Concomitant]
  21. LANTUS [Concomitant]
  22. OS-CAL [Concomitant]

REACTIONS (10)
  - HAEMATOCRIT DECREASED [None]
  - BLOOD UREA INCREASED [None]
  - ATRIOVENTRICULAR BLOCK FIRST DEGREE [None]
  - CHRONIC OBSTRUCTIVE PULMONARY DISEASE [None]
  - BLOOD CREATINE INCREASED [None]
  - MALAISE [None]
  - HAEMOGLOBIN DECREASED [None]
  - BRONCHITIS [None]
  - BLOOD CREATINE PHOSPHOKINASE INCREASED [None]
  - GLYCOSYLATED HAEMOGLOBIN INCREASED [None]
